FAERS Safety Report 6258148-5 (Version None)
Quarter: 2009Q2

REPORT INFORMATION
  Report Type: 
  Country: None (occurrence: None)
  Receive Date: 20090630
  Receipt Date: 20080822
  Transmission Date: 20091009
  Serious: Yes (Death, Hospitalization)
  Sender: FDA-Public Use
  Company Number: M-07-0015

PATIENT
  Age: 75 Year
  Sex: Female

DRUGS (14)
  1. AMIODARONE HCL [Suspect]
     Indication: ATRIAL FIBRILLATION
     Dosage: 200 MG, QD, PO
     Route: 048
     Dates: start: 20040101, end: 20041215
  2. PACERONE [Suspect]
     Indication: ATRIAL FIBRILLATION
     Dosage: 400 MG, QD, PO
     Route: 048
     Dates: start: 20040611, end: 20040101
  3. COUMADIN [Concomitant]
  4. TOPROL-XL [Concomitant]
  5. LASIX [Concomitant]
  6. ALLEGRA [Concomitant]
  7. CELEBREX [Concomitant]
  8. TIAZAC [Concomitant]
  9. PAXIL [Concomitant]
  10. NEXIUM [Concomitant]
  11. SKELAXIN [Concomitant]
  12. ALBUTEROL [Concomitant]
  13. PULMICORT-100 [Concomitant]
  14. LOTREL [Concomitant]

REACTIONS (2)
  - ACUTE RESPIRATORY DISTRESS SYNDROME [None]
  - PULMONARY TOXICITY [None]
